FAERS Safety Report 12465944 (Version 1)
Quarter: 2016Q2

REPORT INFORMATION
  Report Type: Spontaneous
  Country: FR (occurrence: FR)
  Receive Date: 20160614
  Receipt Date: 20160614
  Transmission Date: 20160815
  Serious: Yes (Hospitalization)
  Sender: FDA-Public Use
  Company Number: FR-PFIZER INC-2016198518

PATIENT
  Age: 41 Year
  Sex: Female

DRUGS (1)
  1. NOVATREX NOS [Suspect]
     Active Substance: AZITHROMYCIN OR METHOTREXATE SODIUM
     Dosage: 15 MG, (6 TABLETS)

REACTIONS (2)
  - Intercepted drug prescribing error [Recovered/Resolved]
  - Hiatus hernia [Unknown]
